FAERS Safety Report 5903944-4 (Version None)
Quarter: 2008Q3

REPORT INFORMATION
  Report Type: 
  Country: None (occurrence: None)
  Receive Date: 20080930
  Receipt Date: 20080917
  Transmission Date: 20090109
  Serious: Yes (Hospitalization, Other)
  Sender: FDA-Public Use
  Company Number: US-ELI_LILLY_AND_COMPANY-US200809004133

PATIENT
  Sex: Female

DRUGS (6)
  1. ZYPREXA ZYDIS [Suspect]
     Indication: SCHIZOAFFECTIVE DISORDER
     Dosage: 15 MG, 2/D
  2. LEVOXYL [Concomitant]
  3. LAMICTAL [Concomitant]
  4. EFFEXOR [Concomitant]
  5. TOPAMAX [Concomitant]
  6. CABERGOLINE [Concomitant]

REACTIONS (4)
  - HOSPITALISATION [None]
  - OVERDOSE [None]
  - PITUITARY TUMOUR [None]
  - WEIGHT INCREASED [None]
